FAERS Safety Report 14061894 (Version 2)
Quarter: 2017Q4

REPORT INFORMATION
  Report Type: Spontaneous
  Country: FR (occurrence: FR)
  Receive Date: 20171009
  Receipt Date: 20171120
  Transmission Date: 20180321
  Serious: Yes (Other)
  Sender: FDA-Public Use
  Company Number: FR-MERCK KGAA-2029309

PATIENT
  Age: 85 Year
  Sex: Female

DRUGS (2)
  1. NOVOTHYROX [Suspect]
     Active Substance: LEVOTHYROXINE SODIUM
     Dates: start: 201704
  2. NOVOTHYROX [Suspect]
     Active Substance: LEVOTHYROXINE SODIUM
     Indication: PRODUCT USED FOR UNKNOWN INDICATION
     Dates: start: 201704

REACTIONS (12)
  - Hypokinesia [Recovered/Resolved]
  - Arthralgia [None]
  - Headache [None]
  - Blood glucose increased [None]
  - Blood thyroid stimulating hormone increased [Not Recovered/Not Resolved]
  - Vomiting [Recovered/Resolved]
  - Bedridden [None]
  - Diarrhoea [None]
  - Myalgia [None]
  - Loss of personal independence in daily activities [None]
  - Influenza [None]
  - Fatigue [None]

NARRATIVE: CASE EVENT DATE: 2017
